FAERS Safety Report 25467108 (Version 1)
Quarter: 2025Q2

REPORT INFORMATION
  Report Type: Spontaneous
  Country: JP (occurrence: JP)
  Receive Date: 20250623
  Receipt Date: 20250623
  Transmission Date: 20250716
  Serious: Yes (Hospitalization, Other)
  Sender: GILEAD
  Company Number: JP-GILEAD-2025-0717578

PATIENT
  Age: 58 Year
  Sex: Female
  Weight: 54.5 kg

DRUGS (7)
  1. TRODELVY [Suspect]
     Active Substance: SACITUZUMAB GOVITECAN-HZIY
     Indication: Triple negative breast cancer
     Route: 041
     Dates: start: 20250411, end: 20250523
  2. LOXOPROFEN SODIUM [Concomitant]
     Active Substance: LOXOPROFEN SODIUM
  3. CALONAL [Concomitant]
     Active Substance: ACETAMINOPHEN
  4. DECADRON [Concomitant]
     Active Substance: DEXAMETHASONE
  5. HERBALS [Concomitant]
     Active Substance: HERBALS
  6. AMLODIPINE BESYLATE\IRBESARTAN [Concomitant]
     Active Substance: AMLODIPINE BESYLATE\IRBESARTAN
  7. CLOTIAZEPAM [Concomitant]
     Active Substance: CLOTIAZEPAM

REACTIONS (1)
  - Pulmonary toxicity [Recovering/Resolving]

NARRATIVE: CASE EVENT DATE: 20250605
